FAERS Safety Report 4875617-0 (Version None)
Quarter: 2005Q4

REPORT INFORMATION
  Report Type: 
  Country: None (occurrence: None)
  Receive Date: 20051205
  Receipt Date: 20050916
  Transmission Date: 20060501
  Serious: Yes (Hospitalization)
  Sender: FDA-Public Use
  Company Number: 2005-132560-NL

PATIENT
  Age: 46 Year
  Sex: Female
  Weight: 54 kg

DRUGS (4)
  1. NUVARING [Suspect]
     Indication: MENSTRUATION IRREGULAR
     Dosage: VAGINAL
     Route: 067
     Dates: start: 20050304, end: 20050901
  2. METROGEL [Concomitant]
  3. TYLENOL (CAPLET) [Concomitant]
  4. NEOSPORIN [Concomitant]

REACTIONS (2)
  - PULMONARY EMBOLISM [None]
  - RASH PRURITIC [None]
